FAERS Safety Report 7337731-X (Version None)
Quarter: 2011Q1

REPORT INFORMATION
  Report Type: 
  Country: None (occurrence: None)
  Receive Date: 20110308
  Receipt Date: 20090930
  Transmission Date: 20110831
  Serious: Yes (Hospitalization, Other)
  Sender: FDA-Public Use
  Company Number: US-BAYER-201040341NA

PATIENT
  Sex: Male
  Weight: 86.168 kg

DRUGS (23)
  1. ASA [Concomitant]
     Dosage: UNK UNK, QD
     Route: 048
     Dates: start: 19900101, end: 20040302
  2. NITROGLYCERIN [Concomitant]
     Dosage: 0.6 MG/HOUR
     Route: 061
     Dates: end: 20040302
  3. LOVENOX [Concomitant]
     Dosage: 30 MG, BID
     Route: 058
     Dates: start: 20040227
  4. VERSED [Concomitant]
     Dosage: 5 MG, UNK
     Route: 042
     Dates: start: 20040302, end: 20040302
  5. FENTANYL [Concomitant]
     Dosage: 5 MG, UNK
     Route: 042
     Dates: start: 20040302, end: 20040302
  6. ZINACEF [Concomitant]
     Dosage: 1.5 G, UNK
     Route: 042
     Dates: start: 20040302, end: 20040302
  7. ZITHROMAX [Concomitant]
     Dosage: 500 MG, UNK
     Route: 048
     Dates: start: 20040229
  8. VECURONIUM BROMIDE [Concomitant]
     Dosage: UNK
     Route: 042
     Dates: start: 20040302, end: 20040302
  9. DOBUTAMINE HCL [Concomitant]
     Dosage: UNK
     Route: 042
     Dates: start: 20040302, end: 20040302
  10. TRASYLOL [Suspect]
     Indication: CORONARY ARTERY BYPASS
     Dosage: LOADING DOSE: 100 CC
     Route: 042
     Dates: start: 20040302, end: 20040302
  11. CATAPRES [Concomitant]
     Dosage: 0.1 MG, UNK
     Route: 048
     Dates: start: 20040229
  12. VANCOMYCIN [Concomitant]
     Dosage: 1 G, UNK
     Route: 042
     Dates: start: 20040302
  13. HEPARIN [Concomitant]
     Dosage: 40.000 UNITS
     Route: 042
     Dates: start: 20040302, end: 20040302
  14. NORVASC [Concomitant]
     Dosage: 10 MG, QD
     Route: 048
     Dates: end: 20040302
  15. TOPROL-XL [Concomitant]
     Dosage: 25 MG, QD
     Route: 048
     Dates: start: 20040227
  16. SUFENTA PRESERVATIVE FREE [Concomitant]
     Dosage: UNK
     Route: 042
     Dates: start: 20040302, end: 20040302
  17. POTASSIUM [Concomitant]
     Dosage: UNK
     Route: 048
     Dates: end: 20040302
  18. CARDURA [Concomitant]
     Dosage: DAILY
     Route: 048
     Dates: end: 20040302
  19. ZOCOR [Concomitant]
     Dosage: 20 MG
     Route: 048
  20. VASOPRESSIN [Concomitant]
     Dosage: UNK
     Route: 042
     Dates: start: 20040302, end: 20040302
  21. CORLOPAM [Concomitant]
     Dosage: UNK
     Route: 042
     Dates: start: 20040302, end: 20040302
  22. TRASYLOL [Suspect]
     Dosage: CONTINUOUS INFUSION
     Route: 042
     Dates: start: 20040302, end: 20040302
  23. INTEGRILIN [Concomitant]
     Dosage: 14 CC/HOUR
     Route: 041
     Dates: start: 20040227, end: 20040301

REACTIONS (14)
  - MULTI-ORGAN FAILURE [None]
  - FEAR OF DEATH [None]
  - ANHEDONIA [None]
  - UNEVALUABLE EVENT [None]
  - RENAL FAILURE [None]
  - EMOTIONAL DISTRESS [None]
  - DISABILITY [None]
  - ANXIETY [None]
  - FEAR [None]
  - RENAL INJURY [None]
  - DEPRESSION [None]
  - INJURY [None]
  - PAIN [None]
  - NERVOUSNESS [None]
